FAERS Safety Report 6615742-7 (Version None)
Quarter: 2010Q1

REPORT INFORMATION
  Report Type: 
  Country: None (occurrence: None)
  Receive Date: 20100305
  Receipt Date: 20100225
  Transmission Date: 20100710
  Serious: Yes (Other)
  Sender: FDA-Public Use
  Company Number: US-SANOFI-AVENTIS-2010SA011422

PATIENT
  Age: 38 Year
  Sex: Female

DRUGS (1)
  1. AMBIEN CR [Suspect]
     Indication: INSOMNIA
     Dosage: WAS TAKING 6.25 MG, THEN SWITCHED TO 12.5 MG AND THEN BACK TO 6.25 MG
     Route: 048

REACTIONS (10)
  - AMNESIA [None]
  - BURNS THIRD DEGREE [None]
  - CONTUSION [None]
  - FALL [None]
  - FEELING ABNORMAL [None]
  - PERIORBITAL HAEMATOMA [None]
  - SLEEP TALKING [None]
  - SLEEP-RELATED EATING DISORDER [None]
  - SOMNAMBULISM [None]
  - WEIGHT INCREASED [None]
